FAERS Safety Report 10542014 (Version 1)
Quarter: 2014Q4

REPORT INFORMATION
  Report Type: Spontaneous
  Country: US (occurrence: US)
  Receive Date: 20141024
  Receipt Date: 20141024
  Transmission Date: 20150529
  Serious: No
  Sender: FDA-Public Use
  Company Number: US-PFIZER INC-2014291087

PATIENT
  Sex: Male

DRUGS (2)
  1. CHILDRENS ADVIL [Suspect]
     Active Substance: IBUPROFEN
     Indication: PYREXIA
     Dosage: UNK, USED TTHREE TIMES
  2. CHILDRENS ADVIL [Suspect]
     Active Substance: IBUPROFEN
     Indication: MALAISE

REACTIONS (1)
  - Feeling abnormal [Unknown]
